FAERS Safety Report 8846176 (Version 2)
Quarter: 2012Q4

REPORT INFORMATION
  Report Type: Report from Study
  Country: AU (occurrence: AU)
  Receive Date: 20121017
  Receipt Date: 20121119
  Transmission Date: 20130627
  Serious: Yes (Hospitalization)
  Sender: FDA-Public Use
  Company Number: AU-PFIZER INC-2012247870

PATIENT
  Age: 56 Year
  Sex: Female
  Weight: 48.4 kg

DRUGS (8)
  1. CRIZOTINIB [Suspect]
     Indication: NON-SMALL CELL LUNG CANCER
     Dosage: 200 mg, 2x/day
     Route: 048
     Dates: start: 20120711
  2. PF-00299804 [Suspect]
     Indication: NON-SMALL CELL LUNG CANCER
     Dosage: 30 mg, 1x/day
     Route: 048
     Dates: start: 20120305
  3. MINOCYCLINE [Concomitant]
     Indication: RASH
     Dosage: UNK
     Dates: start: 20120320
  4. SLOW-K [Concomitant]
     Indication: SUPPLEMENTATION THERAPY
     Dosage: UNK
     Dates: start: 20120705
  5. MAGMIN [Concomitant]
     Indication: SUPPLEMENTATION THERAPY
     Dosage: UNK
     Dates: start: 20120228
  6. METOCLOPRAMIDE [Concomitant]
     Indication: NAUSEA
     Dosage: UNK
     Dates: start: 20121001
  7. CLEXANE [Concomitant]
     Indication: PULMONARY EMBOLISM
     Dosage: UNK
     Dates: start: 20121003
  8. HYDROCORTISONE [Concomitant]
     Indication: RASH
     Dosage: UNK
     Dates: start: 20120402

REACTIONS (1)
  - Diarrhoea [Recovered/Resolved]
